FAERS Safety Report 12354100 (Version 2)
Quarter: 2016Q2

REPORT INFORMATION
  Report Type: Spontaneous
  Country: US (occurrence: US)
  Receive Date: 20160511
  Receipt Date: 20160513
  Transmission Date: 20160815
  Serious: No
  Sender: FDA-Public Use
  Company Number: US-009507513-1604USA011723

PATIENT
  Age: 29 Year
  Sex: Female
  Weight: 69.39 kg

DRUGS (1)
  1. NEXPLANON [Suspect]
     Active Substance: ETONOGESTREL
     Indication: CONTRACEPTION
     Dosage: EVERY 3 YEARS, LEFT ARM IMPLANT
     Route: 059
     Dates: start: 20160330

REACTIONS (1)
  - Oligomenorrhoea [Not Recovered/Not Resolved]

NARRATIVE: CASE EVENT DATE: 20160405
